FAERS Safety Report 16017223 (Version 1)
Quarter: 2019Q1

REPORT INFORMATION
  Report Type: Spontaneous
  Country: US (occurrence: US)
  Receive Date: 20190228
  Receipt Date: 20190228
  Transmission Date: 20190418
  Serious: Yes (Hospitalization)
  Sender: FDA-Public Use
  Company Number: US-TEVA-2019-US-1017229

PATIENT
  Age: 49 Year
  Sex: Male

DRUGS (2)
  1. DEXAMETHASONE. [Suspect]
     Active Substance: DEXAMETHASONE
     Dosage: RECEIVED INJECTION OF 3 ML WATER SOLUBLE, IODINE BASED CONTRAST WITH 1 ML OF 10 MG/ML DEXAMETHASO...
     Route: 008
  2. LIDOCAINE. [Suspect]
     Active Substance: LIDOCAINE
     Dosage: RECEIVED INJECTION OF 3 ML WATER SOLUBLE, IODINE BASED CONTRAST WITH 1 ML OF 10 MG/ML DEXAMETHASO...
     Route: 008

REACTIONS (2)
  - Reversible ischaemic neurological deficit [Recovering/Resolving]
  - Off label use [Unknown]
